FAERS Safety Report 6979941-7 (Version None)
Quarter: 2010Q3

REPORT INFORMATION
  Report Type: 
  Country: None (occurrence: None)
  Receive Date: 20100909
  Receipt Date: 20100824
  Transmission Date: 20110219
  Serious: Yes (Hospitalization, Other)
  Sender: FDA-Public Use
  Company Number: CTI_01215_2010

PATIENT
  Sex: Female

DRUGS (5)
  1. MEIACT (MEIACT MS (CEDFITOREN PIVOXIL)) (NOT SPECIFIED) [Suspect]
     Indication: ANTIBIOTIC PROPHYLAXIS
     Dosage: (100 MG 1X ORAL)
     Route: 048
     Dates: start: 20090515, end: 20090515
  2. SCOPOLAMINE BUTYLBROMIDE [Concomitant]
  3. ETHYL ESTER OF IODINATED POPPY-SEED OIL FATTY ACID [Concomitant]
  4. FOSFOMYCIN SODIUM [Concomitant]
  5. BIODIASTASE 2000/CELLULASE AP3/NEWLASE/PROZYME6/PANCREATIC DIGESTIVE E [Concomitant]

REACTIONS (2)
  - ANAPHYLACTIC SHOCK [None]
  - HEADACHE [None]
